FAERS Safety Report 11403343 (Version 1)
Quarter: 2015Q3

REPORT INFORMATION
  Report Type: Spontaneous
  Country: US (occurrence: US)
  Receive Date: 20150821
  Receipt Date: 20150821
  Transmission Date: 20151125
  Serious: No
  Sender: FDA-Public Use
  Company Number: US-TEVA-571606USA

PATIENT
  Sex: Female

DRUGS (1)
  1. CLONIDINE. [Suspect]
     Active Substance: CLONIDINE
     Dosage: .1 MILLIGRAM DAILY;
     Route: 062
     Dates: start: 2015

REACTIONS (3)
  - Product adhesion issue [Unknown]
  - Application site pruritus [Unknown]
  - Application site erythema [Unknown]

NARRATIVE: CASE EVENT DATE: 2015
